FAERS Safety Report 14297166 (Version 1)
Quarter: 2017Q4

REPORT INFORMATION
  Report Type: Spontaneous
  Country: US (occurrence: US)
  Receive Date: 20171218
  Receipt Date: 20171218
  Transmission Date: 20180321
  Serious: Yes (Other)
  Sender: FDA-Public Use
  Company Number: US-ASTELLAS-2017US046239

PATIENT
  Sex: Male

DRUGS (4)
  1. PHENAZOPYRIDINE. [Suspect]
     Active Substance: PHENAZOPYRIDINE
     Indication: DYSURIA
     Route: 065
  2. FLOMAX [Concomitant]
     Active Substance: TAMSULOSIN HYDROCHLORIDE
     Indication: PRODUCT USED FOR UNKNOWN INDICATION
     Dosage: UNK UNK, UNKNOWN FREQ.
     Route: 065
  3. XTANDI [Suspect]
     Active Substance: ENZALUTAMIDE
     Indication: PROSTATE CANCER METASTATIC
     Route: 065
     Dates: start: 20170705
  4. ELIGARD [Concomitant]
     Active Substance: LEUPROLIDE ACETATE
     Indication: PRODUCT USED FOR UNKNOWN INDICATION
     Dosage: UNK UNK, EVERY 6 MONTHS
     Route: 065

REACTIONS (11)
  - Haemorrhage urinary tract [Unknown]
  - Muscle disorder [Unknown]
  - Urinary incontinence [Unknown]
  - Hot flush [Unknown]
  - Dysuria [Recovered/Resolved]
  - Pollakiuria [Unknown]
  - Fat tissue increased [Unknown]
  - Nocturia [Unknown]
  - Chromaturia [Unknown]
  - Dysuria [Not Recovered/Not Resolved]
  - Fatigue [Unknown]
